FAERS Safety Report 24354549 (Version 1)
Quarter: 2024Q3

REPORT INFORMATION
  Report Type: Spontaneous
  Country: US (occurrence: US)
  Receive Date: 20240923
  Receipt Date: 20240923
  Transmission Date: 20241016
  Serious: No
  Sender: TEVA
  Company Number: US-TEVA-VS-3240079

PATIENT
  Sex: Male

DRUGS (1)
  1. ALBENDAZOLE [Suspect]
     Active Substance: ALBENDAZOLE
     Indication: Fascioliasis
     Route: 065

REACTIONS (4)
  - Drug ineffective [Not Recovered/Not Resolved]
  - Product prescribing issue [Not Recovered/Not Resolved]
  - Personal relationship issue [Unknown]
  - Exposure to communicable disease [Not Recovered/Not Resolved]
